FAERS Safety Report 9551450 (Version 1)
Quarter: 2013Q2

REPORT INFORMATION
  Report Type: Spontaneous
  Country: US (occurrence: None)
  Receive Date: 20130627
  Receipt Date: 20130627
  Transmission Date: 20140414
  Serious: No
  Sender: FDA-Public Use
  Company Number: 1000045277

PATIENT
  Age: 86 Year
  Sex: Female

DRUGS (8)
  1. LINZESS (LINACLOTIDE) (CAPSULES) [Suspect]
     Indication: CONSTIPATION
     Route: 048
  2. ACIPHEX (RABEPRAZOLE SODIUM) [Concomitant]
  3. VIT D (ERGOCALCIFEROL) [Concomitant]
  4. VIT B1 (THIAMINE HYDROCHLORIDE) [Concomitant]
  5. COLACE [Concomitant]
  6. MACROBID (NITROFURANTOIN) [Concomitant]
  7. SIMVASTATIN [Concomitant]
  8. SYNTHROID (LEVOTHYROXINE SODIUM) [Concomitant]

REACTIONS (2)
  - Muscle spasms [None]
  - Nausea [None]
